FAERS Safety Report 8852709 (Version 1)
Quarter: 2012Q4

REPORT INFORMATION
  Report Type: 
  Country: US (occurrence: US)
  Receive Date: 20121022
  Receipt Date: 20121022
  Transmission Date: 20130627
  Serious: No
  Sender: FDA-Public Use
  Company Number: US-B.I. PHARMACEUTICALS,INC./RIDGEFIELD-2012-BP-26028BP

PATIENT
  Age: 74 Year
  Sex: Female
  Weight: 52 kg

DRUGS (4)
  1. PRADAXA [Suspect]
     Indication: ATRIAL FIBRILLATION
     Dosage: 150 mg
     Route: 048
     Dates: start: 201101
  2. CARDIZEM LA [Concomitant]
     Dosage: 180 mg
     Route: 048
  3. RAMIPRIL [Concomitant]
     Indication: HYPERTENSION
     Dosage: 5 mg
     Route: 048
  4. ASACOL [Concomitant]
     Indication: COLITIS
     Dosage: 800 mg
     Route: 048
     Dates: start: 2007

REACTIONS (2)
  - Feeling cold [Recovered/Resolved]
  - Dysstasia [Recovered/Resolved]
